FAERS Safety Report 16393812 (Version 1)
Quarter: 2019Q2

REPORT INFORMATION
  Report Type: Spontaneous
  Country: US (occurrence: US)
  Receive Date: 20190605
  Receipt Date: 20190605
  Transmission Date: 20190711
  Serious: No
  Sender: FDA-Public Use
  Company Number: US-PFIZER INC-2019233075

PATIENT
  Age: 62 Year
  Sex: Male
  Weight: 81.19 kg

DRUGS (2)
  1. CHANTIX [Suspect]
     Active Substance: VARENICLINE TARTRATE
     Dosage: (0.5 MG FOR 7 DAYS, THE FIRST 3, ONE TABLET IN THE MORNING, 4, 5, 6, 7, THEN 1 MG AFTER)
  2. CHANTIX [Suspect]
     Active Substance: VARENICLINE TARTRATE
     Indication: SMOKING CESSATION THERAPY
     Dosage: 1 MG, UNK
     Dates: start: 201904, end: 201905

REACTIONS (4)
  - Abdominal discomfort [Unknown]
  - Nightmare [Unknown]
  - Tobacco user [Unknown]
  - Abdominal pain [Recovered/Resolved]

NARRATIVE: CASE EVENT DATE: 201904
